FAERS Safety Report 18031996 (Version 1)
Quarter: 2020Q3

REPORT INFORMATION
  Report Type: Spontaneous
  Country: US (occurrence: US)
  Receive Date: 20200716
  Receipt Date: 20200716
  Transmission Date: 20201103
  Serious: Yes (Other)
  Sender: FDA-Public Use
  Company Number: US-PFIZER INC-2020270647

PATIENT
  Age: 67 Year
  Sex: Female
  Weight: 54.43 kg

DRUGS (1)
  1. DETROL LA [Suspect]
     Active Substance: TOLTERODINE TARTRATE
     Indication: INCONTINENCE
     Dosage: 4 MG, 1X/DAY (4MG CAPSULE 1 CAPSULE BY MOUTH AT NIGHT)
     Route: 048

REACTIONS (4)
  - Drug ineffective [Unknown]
  - Pain [Unknown]
  - Lower limb fracture [Not Recovered/Not Resolved]
  - Bradykinesia [Unknown]

NARRATIVE: CASE EVENT DATE: 20200515
